FAERS Safety Report 5107719-8 (Version None)
Quarter: 2006Q3

REPORT INFORMATION
  Report Type: 
  Country: None (occurrence: None)
  Receive Date: 20060914
  Receipt Date: 20060825
  Transmission Date: 20061208
  Serious: Yes (Life-Threatening)
  Sender: FDA-Public Use
  Company Number: 2005150226

PATIENT
  Age: 74 Year
  Sex: Male
  Weight: 57.2 kg

DRUGS (15)
  1. IRINOTECAN HCL [Suspect]
     Indication: PLEURAL MESOTHELIOMA MALIGNANT
     Dosage: 60 MG (1 IN 7 D), INTRAVENOUS
     Route: 042
     Dates: start: 20050518, end: 20050525
  2. IRINOTECAN HCL [Suspect]
     Indication: PLEURAL MESOTHELIOMA MALIGNANT
     Dosage: 60 MG (1 IN 7 D), INTRAVENOUS
     Route: 042
     Dates: start: 20050616, end: 20050623
  3. IRINOTECAN HCL [Suspect]
     Indication: PLEURAL MESOTHELIOMA MALIGNANT
     Dosage: 60 MG (1 IN 7 D), INTRAVENOUS
     Route: 042
     Dates: start: 20050707, end: 20050714
  4. IRINOTECAN HCL [Suspect]
     Indication: PLEURAL MESOTHELIOMA MALIGNANT
     Dosage: 60 MG (1 IN 7 D), INTRAVENOUS
     Route: 042
     Dates: start: 20050728, end: 20050804
  5. METHOTREXATE [Suspect]
     Indication: PLEURAL MESOTHELIOMA MALIGNANT
     Dosage: 150 MG (1 IN 7 D), INTRAVENOUS
     Route: 042
     Dates: start: 20050518, end: 20050525
  6. METHOTREXATE [Suspect]
     Indication: PLEURAL MESOTHELIOMA MALIGNANT
     Dosage: 150 MG (1 IN 7 D), INTRAVENOUS
     Route: 042
     Dates: start: 20050616, end: 20050623
  7. METHOTREXATE [Suspect]
     Indication: PLEURAL MESOTHELIOMA MALIGNANT
     Dosage: 150 MG (1 IN 7 D), INTRAVENOUS
     Route: 042
     Dates: start: 20050707, end: 20050714
  8. METHOTREXATE [Suspect]
     Indication: PLEURAL MESOTHELIOMA MALIGNANT
     Dosage: 150 MG (1 IN 7 D), INTRAVENOUS
     Route: 042
     Dates: start: 20050728, end: 20050804
  9. DOXORUBICIN HCL [Concomitant]
  10. LEUCOVORIN CALCIUM [Concomitant]
  11. RABEPRAZOLE SODIUM [Concomitant]
  12. LOXONIN (LOXOPROFEN SODIUM) [Concomitant]
  13. MUCOSTA (REBAMIPIDE) [Concomitant]
  14. DEPAS (ETIZOLAM) [Concomitant]
  15. BROCIN-CODEINE (CODEINE PHOSPHATE, WILD CHERRY BARK) [Concomitant]

REACTIONS (4)
  - INTERSTITIAL LUNG DISEASE [None]
  - LYMPHOCYTE STIMULATION TEST POSITIVE [None]
  - PYREXIA [None]
  - RESPIRATORY FAILURE [None]
